FAERS Safety Report 9963849 (Version 1)
Quarter: 2014Q1

REPORT INFORMATION
  Report Type: Report from Study
  Country: US (occurrence: US)
  Receive Date: 20140305
  Receipt Date: 20140305
  Transmission Date: 20141002
  Serious: No
  Sender: FDA-Public Use
  Company Number: US-ABBVIE-13P-163-1119135-00

PATIENT
  Sex: Female

DRUGS (4)
  1. HUMIRA [Suspect]
     Indication: COLITIS ULCERATIVE
     Dates: start: 20120211
  2. TYLENOL [Concomitant]
     Indication: PAIN
  3. ADVIL [Concomitant]
     Indication: PAIN
  4. HYDROCODONE [Concomitant]
     Indication: PAIN
     Route: 048

REACTIONS (2)
  - Fungal infection [Unknown]
  - Fungal infection [Not Recovered/Not Resolved]
